FAERS Safety Report 9404665 (Version 2)
Quarter: 2013Q3

REPORT INFORMATION
  Report Type: Spontaneous
  Country: BR (occurrence: BR)
  Receive Date: 20130717
  Receipt Date: 20130725
  Transmission Date: 20140515
  Serious: Yes (Hospitalization, Other)
  Sender: FDA-Public Use
  Company Number: PHHY2013BR074909

PATIENT
  Sex: Male
  Weight: 92 kg

DRUGS (8)
  1. RASILEZ AMLO [Suspect]
     Indication: HYPERTENSION
     Dosage: 1 DF, (300 MG ALIS/10 MG AMLO)DAILY
     Route: 048
     Dates: start: 2011
  2. METHYLDOPA [Concomitant]
     Indication: HYPERTENSION
     Dosage: 2 DF, DAILY (500 MG)
     Route: 048
  3. FUROSEMIDE [Concomitant]
     Indication: HYPERTENSION
     Dosage: 2 DF, DAILY(40 MG)
     Route: 048
  4. ATENOLOL [Concomitant]
     Indication: HYPERTENSION
     Dosage: 1 DF, (100 MG) AT NIGHT
     Route: 048
  5. INSULINE NPH [Concomitant]
     Indication: DIABETES MELLITUS
     Dosage: 40 IU IN THE MORNING AND 20 IU AT NIGHT
     Route: 058
  6. REGULAR INSULIN [Concomitant]
     Indication: DIABETES MELLITUS
     Dosage: 10 IU IN THE MORNING AND 5 IU AT NIGHT
     Route: 058
  7. METFORMIN [Concomitant]
     Indication: DIABETES MELLITUS
     Dosage: 3 DF, DAILY (850 MG)
     Route: 048
  8. CAPTOPRIL [Concomitant]
     Indication: BLOOD PRESSURE INCREASED
     Dosage: RARELY
     Route: 060

REACTIONS (5)
  - Blood glucose increased [Recovered/Resolved]
  - Pain in extremity [Recovered/Resolved]
  - Poor peripheral circulation [Recovered/Resolved]
  - Blood pressure fluctuation [Recovering/Resolving]
  - Erythema [Recovered/Resolved]
